FAERS Safety Report 5615613-9 (Version None)
Quarter: 2008Q1

REPORT INFORMATION
  Report Type: 
  Country: None (occurrence: None)
  Receive Date: 20080206
  Receipt Date: 20080129
  Transmission Date: 20080703
  Serious: Yes (Other)
  Sender: FDA-Public Use
  Company Number: A0706960A

PATIENT
  Age: 33 Year
  Sex: Female
  Weight: 54.5 kg

DRUGS (1)
  1. MALARONE [Suspect]
     Indication: MALARIA PROPHYLAXIS
     Dosage: 1TAB PER DAY
     Route: 048
     Dates: start: 20070401, end: 20071007

REACTIONS (15)
  - ABASIA [None]
  - ABDOMINAL PAIN [None]
  - ABDOMINAL PAIN UPPER [None]
  - CHEST PAIN [None]
  - DIARRHOEA [None]
  - GENITAL SWELLING [None]
  - MUCOUS MEMBRANE DISORDER [None]
  - OEDEMA MOUTH [None]
  - PANCREATITIS [None]
  - PERICARDITIS [None]
  - PYREXIA [None]
  - SKIN LESION [None]
  - STEVENS-JOHNSON SYNDROME [None]
  - URTICARIA [None]
  - VULVAL OEDEMA [None]
